FAERS Safety Report 14287735 (Version 1)
Quarter: 2017Q4

REPORT INFORMATION
  Report Type: Report from Study
  Country: JP (occurrence: JP)
  Receive Date: 20171214
  Receipt Date: 20171214
  Transmission Date: 20180321
  Serious: Yes (Hospitalization)
  Sender: FDA-Public Use
  Company Number: JP-DSJP-DSJ-2017-153922

PATIENT

DRUGS (40)
  1. EDOXABAN [Suspect]
     Active Substance: EDOXABAN TOSYLATE
     Dosage: 30 MG, QD
     Route: 048
     Dates: start: 20170228, end: 20170228
  2. EDOXABAN [Suspect]
     Active Substance: EDOXABAN TOSYLATE
     Dosage: 60 MG, QD
     Route: 048
     Dates: start: 20170301, end: 20170828
  3. EDOXABAN [Suspect]
     Active Substance: EDOXABAN TOSYLATE
     Dosage: 60 MG, QD
     Route: 048
     Dates: start: 20170830
  4. MEVALOTIN [Concomitant]
     Active Substance: PRAVASTATIN SODIUM
     Dosage: 1G/DAY
     Route: 048
  5. DIGOXIN. [Concomitant]
     Active Substance: DIGOXIN
     Dosage: 0.125MG/DAY
     Route: 048
  6. GLACTIV [Concomitant]
     Active Substance: SITAGLIPTIN
     Dosage: 50MG/DAY
     Route: 048
     Dates: end: 20160707
  7. NICERGOLINE [Concomitant]
     Active Substance: NICERGOLINE
     Dosage: 15MG/DAY
     Route: 048
     Dates: start: 20151225, end: 20160707
  8. SAWACILLIN [Concomitant]
     Active Substance: AMOXICILLIN
     Dosage: 1500MG/DAY
     Route: 048
     Dates: start: 20160815, end: 20160821
  9. FLAGYL [Concomitant]
     Active Substance: METRONIDAZOLE\METRONIDAZOLE HYDROCHLORIDE
     Dosage: 500MG/DAY
     Route: 048
     Dates: start: 20160815, end: 20160821
  10. EDOXABAN [Suspect]
     Active Substance: EDOXABAN TOSYLATE
     Indication: ATRIAL FIBRILLATION
     Dosage: 30 MG, QD
     Route: 048
     Dates: start: 20151026, end: 20151223
  11. EFIENT [Suspect]
     Active Substance: PRASUGREL HYDROCHLORIDE
     Indication: PRODUCT USED FOR UNKNOWN INDICATION
     Dosage: 3.75 MG, QD
     Route: 048
     Dates: start: 20160517, end: 20170226
  12. GASTER [Concomitant]
     Active Substance: FAMOTIDINE
     Dosage: 20MG/DAY
     Route: 048
     Dates: start: 20160618, end: 20170814
  13. GASTER [Concomitant]
     Active Substance: FAMOTIDINE
     Dosage: 20MG/DAY
     Route: 048
     Dates: start: 20160822, end: 20161016
  14. PANTOSIN [Concomitant]
     Active Substance: PANTETHINE
     Dosage: 1G/DAY
     Route: 048
  15. TAKECAB [Concomitant]
     Active Substance: VONOPRAZAN FUMURATE
     Dosage: 40MG/DAY
     Route: 048
     Dates: start: 20160611, end: 20160617
  16. AMOLIN                             /00249602/ [Concomitant]
     Active Substance: AMOXICILLIN
     Dosage: 1500MG/DAY
     Route: 048
     Dates: start: 20160611, end: 20160617
  17. EFIENT [Suspect]
     Active Substance: PRASUGREL HYDROCHLORIDE
     Dosage: 3.75 MG, QD
     Route: 048
     Dates: start: 20170228, end: 20170413
  18. SERMION                            /00396401/ [Concomitant]
     Active Substance: NICERGOLINE
     Dosage: 1G/DAY
     Route: 048
     Dates: end: 20151224
  19. CLARITH [Concomitant]
     Active Substance: CLARITHROMYCIN
     Dosage: 800MG/DAY
     Route: 048
     Dates: start: 20160611, end: 20160617
  20. PARIET [Concomitant]
     Active Substance: RABEPRAZOLE SODIUM
     Dosage: 20MG/DAY
     Route: 048
     Dates: start: 20160815, end: 20160821
  21. BAYASPIRIN [Suspect]
     Active Substance: ASPIRIN
     Dosage: 100MG/DAY
     Route: 048
     Dates: start: 20160517, end: 20170226
  22. ITOROL [Concomitant]
     Active Substance: ISOSORBIDE MONONITRATE
     Dosage: 40MG/DAY
     Route: 048
     Dates: end: 20151224
  23. JANUVIA [Concomitant]
     Active Substance: SITAGLIPTIN PHOSPHATE
     Dosage: 50MG/DAY
     Route: 048
     Dates: start: 20151126
  24. METGLUCO [Concomitant]
     Active Substance: METFORMIN HYDROCHLORIDE
     Dosage: 500MG/DAY
     Route: 048
     Dates: start: 20151126, end: 20160128
  25. METGLUCO [Concomitant]
     Active Substance: METFORMIN HYDROCHLORIDE
     Dosage: 750MG/DAY
     Route: 048
     Dates: start: 20160129
  26. AMLODIPINE                         /00972402/ [Concomitant]
     Active Substance: AMLODIPINE BESYLATE
     Dosage: 5MG/DAY
     Route: 048
     Dates: start: 20170720
  27. PRAVASTATIN NA [Concomitant]
     Active Substance: PRAVASTATIN SODIUM
     Dosage: 10MG/DAY
     Route: 048
     Dates: end: 20160901
  28. BAYASPIRIN [Suspect]
     Active Substance: ASPIRIN
     Dosage: 100MG/DAY
     Route: 048
     Dates: start: 20170228
  29. GASTER [Concomitant]
     Active Substance: FAMOTIDINE
     Dosage: 1G/DAY
     Route: 048
     Dates: end: 20151223
  30. FUROSEMIDE. [Concomitant]
     Active Substance: FUROSEMIDE
     Dosage: 40MG/DAY
     Route: 048
  31. EUGLUCON [Concomitant]
     Active Substance: GLYBURIDE
     Dosage: 1.25MG/DAY
     Route: 048
     Dates: end: 20151125
  32. FRANDOL [Concomitant]
     Active Substance: ISOSORBIDE DINITRATE
     Dosage: 40MG/DAY
     Route: 050
     Dates: start: 20151225, end: 20170216
  33. TAKECAB [Concomitant]
     Active Substance: VONOPRAZAN FUMURATE
     Dosage: 10MG/DAY
     Route: 048
     Dates: start: 20161017
  34. NEXIUM [Concomitant]
     Active Substance: ESOMEPRAZOLE MAGNESIUM
     Dosage: 20MG/DAY
     Route: 048
     Dates: start: 20151224, end: 20160610
  35. MICARDIS [Concomitant]
     Active Substance: TELMISARTAN
     Dosage: 20MG/DAY
     Route: 048
     Dates: start: 20160901
  36. CILOSTAZOL. [Concomitant]
     Active Substance: CILOSTAZOL
     Dosage: 100MG/DAY
     Route: 048
     Dates: end: 20160516
  37. ZYLORIC [Concomitant]
     Active Substance: ALLOPURINOL
     Dosage: 100MG/DAY
     Route: 048
  38. ATORVASTATIN                       /01326102/ [Concomitant]
     Active Substance: ATORVASTATIN
     Dosage: 5MG/DAY
     Route: 048
     Dates: start: 20160902, end: 20161221
  39. ATORVASTATIN                       /01326102/ [Concomitant]
     Active Substance: ATORVASTATIN
     Dosage: 10MG/DAY
     Route: 048
     Dates: start: 20161222
  40. EDOXABAN [Suspect]
     Active Substance: EDOXABAN TOSYLATE
     Dosage: 60 MG, QD
     Route: 048
     Dates: start: 20151224, end: 20170226

REACTIONS (3)
  - Helicobacter infection [Recovered/Resolved]
  - Gastrointestinal tract adenoma [Recovered/Resolved]
  - Eyelid bleeding [Recovered/Resolved]

NARRATIVE: CASE EVENT DATE: 20160610
